FAERS Safety Report 24043782 (Version 1)
Quarter: 2024Q3

REPORT INFORMATION
  Report Type: Spontaneous
  Country: FR (occurrence: FR)
  Receive Date: 20240703
  Receipt Date: 20240703
  Transmission Date: 20241017
  Serious: Yes (Other)
  Sender: AUROBINDO
  Company Number: FR-AFSSAPS-LY2024000823

PATIENT
  Age: 2 Year
  Sex: Male
  Weight: 13.3 kg

DRUGS (20)
  1. PREDNISOLONE [Interacting]
     Active Substance: PREDNISOLONE
     Indication: Viral myocarditis
     Dosage: 5 MILLIGRAM, ONCE A DAY
     Route: 048
     Dates: start: 20240514, end: 20240514
  2. PREDNISOLONE [Interacting]
     Active Substance: PREDNISOLONE
     Dosage: 7.5 MILLIGRAM, ONCE A DAY
     Route: 048
     Dates: start: 20240507, end: 20240513
  3. PREDNISOLONE [Interacting]
     Active Substance: PREDNISOLONE
     Dosage: 15 MILLIGRAM, ONCE A DAY
     Route: 048
     Dates: start: 20240521
  4. PREDNISOLONE [Interacting]
     Active Substance: PREDNISOLONE
     Dosage: 2.5 MILLIGRAM, ONCE A DAY
     Route: 048
     Dates: start: 20240515, end: 20240520
  5. PREDNISOLONE [Interacting]
     Active Substance: PREDNISOLONE
     Dosage: 15 MILLIGRAM, ONCE A DAY
     Route: 048
     Dates: start: 20240424, end: 20240429
  6. PREDNISOLONE [Interacting]
     Active Substance: PREDNISOLONE
     Dosage: 10 MILLIGRAM, ONCE A DAY
     Route: 048
     Dates: start: 20240430, end: 20240506
  7. BETAFERON [Interacting]
     Active Substance: INTERFERON BETA-1B
     Indication: Viral myocarditis
     Dosage: 250 MICROGRAM, EVERY OTHER DAY
     Route: 058
     Dates: start: 20240424, end: 20240514
  8. WARFARIN [Interacting]
     Active Substance: WARFARIN
     Indication: Cardiac ventricular thrombosis
     Dosage: 1 MILLIGRAM, ONCE A DAY
     Route: 048
     Dates: start: 20240525, end: 20240526
  9. WARFARIN [Interacting]
     Active Substance: WARFARIN
     Dosage: 1.5 MILLIGRAM, ONCE A DAY
     Route: 048
     Dates: start: 20240513, end: 20240513
  10. WARFARIN [Interacting]
     Active Substance: WARFARIN
     Dosage: 0.9 MILLIGRAM, ONCE A DAY
     Route: 048
     Dates: start: 20240519, end: 20240524
  11. WARFARIN [Interacting]
     Active Substance: WARFARIN
     Dosage: 2 MILLIGRAM, ONCE A DAY
     Route: 048
     Dates: start: 20240505, end: 20240506
  12. WARFARIN [Interacting]
     Active Substance: WARFARIN
     Dosage: 1.8 MILLIGRAM, ONCE A DAY
     Route: 048
     Dates: start: 20240508, end: 20240510
  13. WARFARIN [Interacting]
     Active Substance: WARFARIN
     Dosage: 1.7 MILLIGRAM, ONCE A DAY
     Route: 048
     Dates: start: 20240511, end: 20240512
  14. WARFARIN [Interacting]
     Active Substance: WARFARIN
     Dosage: 2 MILLIGRAM, ONCE A DAY
     Route: 048
     Dates: start: 20240502, end: 20240503
  15. WARFARIN [Interacting]
     Active Substance: WARFARIN
     Dosage: 1.2 MILLIGRAM, ONCE A DAY
     Route: 048
     Dates: start: 20240515, end: 20240516
  16. WARFARIN [Interacting]
     Active Substance: WARFARIN
     Dosage: 2.2 MILLIGRAM, ONCE A DAY
     Route: 048
     Dates: start: 20240504, end: 20240504
  17. WARFARIN [Interacting]
     Active Substance: WARFARIN
     Dosage: 1 MILLIGRAM, ONCE A DAY
     Route: 048
     Dates: start: 20240517, end: 20240518
  18. CAPTOPRIL [Concomitant]
     Active Substance: CAPTOPRIL
     Indication: Product used for unknown indication
     Dosage: UNK
     Route: 065
  19. BISOPROLOL FUMARATE [Concomitant]
     Active Substance: BISOPROLOL FUMARATE
     Indication: Product used for unknown indication
     Dosage: UNK
     Route: 065
  20. FUROSEMIDE [Concomitant]
     Active Substance: FUROSEMIDE
     Indication: Product used for unknown indication
     Dosage: UNK
     Route: 065

REACTIONS (1)
  - International normalised ratio increased [Recovered/Resolved]

NARRATIVE: CASE EVENT DATE: 20240506
